FAERS Safety Report 9090764 (Version 1)
Quarter: 2013Q1

REPORT INFORMATION
  Report Type: Spontaneous
  Country: US (occurrence: US)
  Receive Date: 20130131
  Receipt Date: 20130131
  Transmission Date: 20140127
  Serious: Yes (Other)
  Sender: FDA-Public Use
  Company Number: US-BAYER-2013-011429

PATIENT
  Age: 89 Year
  Sex: Female

DRUGS (2)
  1. ASPIRIN [Suspect]
     Dosage: 1 DF, ONCE
     Route: 048
     Dates: start: 20130124
  2. ANTIHYPERTENSIVES [Concomitant]

REACTIONS (3)
  - Choking [Recovered/Resolved]
  - Foreign body [Unknown]
  - Insomnia [Recovered/Resolved]
